FAERS Safety Report 14997819 (Version 1)
Quarter: 2018Q2

REPORT INFORMATION
  Report Type: Spontaneous
  Country: US (occurrence: US)
  Receive Date: 20180611
  Receipt Date: 20180611
  Transmission Date: 20180711
  Serious: No
  Sender: FDA-Public Use
  Company Number: US-FOUNDATIONCONSUMERHC-2018-US-006467

PATIENT
  Age: 36 Year
  Sex: Female
  Weight: 81.19 kg

DRUGS (5)
  1. WARFARIN UNSPECIFIED [Concomitant]
     Dosage: UNK
     Route: 048
  2. BIOTIN UNSPECIFIED [Concomitant]
     Dosage: UNK
     Route: 048
  3. IMMUNOGLOBULIN THERAPY UNSPECIFIED [Concomitant]
     Dosage: Q 3 WEEKS FOR 2 DAYS
     Route: 065
  4. VITAMIN UNSPECIFIED [Concomitant]
     Dosage: UNK
     Route: 048
  5. PLAN B ONE-STEP [Suspect]
     Active Substance: LEVONORGESTREL
     Dosage: 1.5 MG PO
     Route: 048
     Dates: start: 20180410, end: 20180410

REACTIONS (3)
  - Breast tenderness [Not Recovered/Not Resolved]
  - Dysmenorrhoea [Recovered/Resolved]
  - Vaginal haemorrhage [Not Recovered/Not Resolved]

NARRATIVE: CASE EVENT DATE: 20180416
